FAERS Safety Report 8161180-8 (Version None)
Quarter: 2012Q1

REPORT INFORMATION
  Report Type: 
  Country: None (occurrence: None)
  Receive Date: 20120103
  Receipt Date: 20111116
  Transmission Date: 20120608
  Serious: No
  Sender: FDA-Public Use
  Company Number: AE-2011-003593

PATIENT
  Age: 44 Year
  Sex: Female
  Weight: 51.2565 kg

DRUGS (5)
  1. INCIVEK [Suspect]
     Dosage: 2250 MG (750 MG, 1 IN 8 HR), ORAL
     Route: 048
     Dates: start: 20111011
  2. ELMIRON [Concomitant]
  3. PEGASYS [Concomitant]
  4. RIBAVIRIN [Concomitant]
  5. SINGULAIR [Concomitant]

REACTIONS (4)
  - DYSPNOEA [None]
  - FEELING HOT [None]
  - LOSS OF CONSCIOUSNESS [None]
  - ASTHENIA [None]
